FAERS Safety Report 7743866-X (Version None)
Quarter: 2011Q3

REPORT INFORMATION
  Report Type: 
  Country: None (occurrence: None)
  Receive Date: 20110909
  Receipt Date: 20110909
  Transmission Date: 20111222
  Serious: No
  Sender: FDA-Public Use
  Company Number: None

PATIENT
  Sex: Female
  Weight: 62.5964 kg

DRUGS (1)
  1. ACETAMINOPHEN AND CODEINE PHOSPHATE [Suspect]
     Indication: BACK PAIN
     Dosage: EVERY 6 HRS AS NEEDED
     Dates: start: 20110824

REACTIONS (2)
  - DRY MOUTH [None]
  - LIP DRY [None]
